FAERS Safety Report 9664471 (Version 3)
Quarter: 2014Q1

REPORT INFORMATION
  Report Type: Spontaneous
  Country: FR (occurrence: FR)
  Receive Date: 20131101
  Receipt Date: 20140321
  Transmission Date: 20141002
  Serious: Yes (Hospitalization)
  Sender: FDA-Public Use
  Company Number: FR-SA-2013SA107582

PATIENT
  Age: 68 Year
  Sex: Female
  Weight: 86 kg

DRUGS (9)
  1. HEPARINE CHOAY [Suspect]
     Indication: JUGULAR VEIN THROMBOSIS
     Route: 042
     Dates: start: 20131003, end: 20131011
  2. LOVENOX [Suspect]
     Indication: THROMBOSIS PROPHYLAXIS
     Route: 058
     Dates: start: 20131002, end: 20131002
  3. LOVENOX [Suspect]
     Indication: THROMBOSIS PROPHYLAXIS
     Route: 058
     Dates: start: 20130926, end: 20130926
  4. AUGMENTIN [Concomitant]
  5. GENTAMICIN [Concomitant]
  6. FLUCONAZOLE [Concomitant]
  7. MEROPENEM [Concomitant]
  8. VANCOMYCIN [Concomitant]
  9. AMIKACIN [Concomitant]

REACTIONS (7)
  - Adrenal cortex necrosis [Recovered/Resolved with Sequelae]
  - Hypokalaemia [Not Recovered/Not Resolved]
  - Acute coronary syndrome [Not Recovered/Not Resolved]
  - Heparin-induced thrombocytopenia [Recovered/Resolved]
  - Platelet count decreased [Not Recovered/Not Resolved]
  - Pulmonary embolism [Recovered/Resolved with Sequelae]
  - Deep vein thrombosis [Not Recovered/Not Resolved]
